FAERS Safety Report 6030245-9 (Version None)
Quarter: 2009Q1

REPORT INFORMATION
  Report Type: 
  Country: None (occurrence: None)
  Receive Date: 20090107
  Receipt Date: 20090105
  Transmission Date: 20090719
  Serious: Yes (Death, Hospitalization)
  Sender: FDA-Public Use
  Company Number: US-ABBOTT-09P-163-0495928-00

PATIENT
  Sex: Male
  Weight: 134.84 kg

DRUGS (15)
  1. HUMIRA [Suspect]
     Indication: PSORIASIS
     Dosage: 80MG LOADING DOSE
     Route: 058
     Dates: start: 20080318, end: 20080318
  2. HUMIRA [Suspect]
     Route: 058
     Dates: start: 20080325, end: 20080501
  3. HUMIRA [Suspect]
     Route: 058
     Dates: start: 20080602, end: 20081201
  4. ATENOLOL [Concomitant]
     Indication: HYPERTENSION
     Route: 048
  5. COZAAR [Concomitant]
     Indication: HYPERTENSION
     Route: 048
  6. AVANDIA [Concomitant]
     Indication: DIABETES MELLITUS
     Route: 048
  7. GLIPIZIDE [Concomitant]
     Indication: DIABETES MELLITUS
     Route: 048
  8. METFORMIN HCL [Concomitant]
     Indication: DIABETES MELLITUS
     Route: 048
  9. POTASSIUM CHLORIDE [Concomitant]
     Indication: DRUG USE FOR UNKNOWN INDICATION
     Route: 048
  10. LASIX [Concomitant]
     Indication: DRUG USE FOR UNKNOWN INDICATION
     Route: 048
  11. LANTUS [Concomitant]
     Indication: DIABETES MELLITUS
     Route: 058
  12. TRICOR [Concomitant]
     Indication: BLOOD CHOLESTEROL INCREASED
     Route: 048
  13. CEPHALEXIN [Concomitant]
     Indication: DRUG USE FOR UNKNOWN INDICATION
  14. COMBIVENT [Concomitant]
     Indication: ASTHMA
     Route: 055
  15. DOXEPIN HCL [Concomitant]
     Indication: DRUG USE FOR UNKNOWN INDICATION
     Route: 048

REACTIONS (5)
  - ABDOMINAL DISTENSION [None]
  - CARDIAC FAILURE [None]
  - CEREBROVASCULAR ACCIDENT [None]
  - DYSPNOEA [None]
  - PARAESTHESIA [None]
